FAERS Safety Report 10018194 (Version 1)
Quarter: 2014Q1

REPORT INFORMATION
  Report Type: Spontaneous
  Country: US (occurrence: US)
  Receive Date: 20140318
  Receipt Date: 20140318
  Transmission Date: 20141002
  Serious: No
  Sender: FDA-Public Use
  Company Number: US-BRISTOL-MYERS SQUIBB COMPANY-19196286

PATIENT
  Age: 52 Year
  Sex: Male

DRUGS (6)
  1. ERBITUX [Suspect]
     Indication: COLORECTAL CANCER METASTATIC
     Dosage: 1DF:1DOSE
     Route: 042
     Dates: start: 20130731
  2. IRINOTECAN [Concomitant]
  3. XELODA [Concomitant]
  4. ATIVAN [Concomitant]
  5. ZOFRAN [Concomitant]
  6. COMPAZINE [Concomitant]

REACTIONS (1)
  - Rash [Unknown]
